FAERS Safety Report 15035388 (Version 2)
Quarter: 2020Q2

REPORT INFORMATION
  Report Type: Spontaneous
  Country: US (occurrence: US)
  Receive Date: 20180620
  Receipt Date: 20200617
  Transmission Date: 20200713
  Serious: No
  Sender: FDA-Public Use
  Company Number: US-AUROBINDO-AUR-APU-2018-020680

PATIENT
  Age: 18 Month
  Sex: Female

DRUGS (1)
  1. CLINDAMYCIN PALMITATE HYDROCHLORIDE FOR ORAL SOLUTION USP(PEDIATRIC) [Suspect]
     Active Substance: CLINDAMYCIN PALMITATE HYDROCHLORIDE
     Indication: URINARY TRACT INFECTION
     Dosage: 8 MILLILITER, 3 TIMES A DAY
     Route: 048
     Dates: start: 20180410

REACTIONS (3)
  - Liquid product physical issue [Unknown]
  - Product odour abnormal [Unknown]
  - Diarrhoea [Unknown]

NARRATIVE: CASE EVENT DATE: 2018
